FAERS Safety Report 9346707 (Version 2)
Quarter: 2013Q3

REPORT INFORMATION
  Report Type: Spontaneous
  Country: KR (occurrence: KR)
  Receive Date: 20130613
  Receipt Date: 20130702
  Transmission Date: 20140515
  Serious: Yes (Other)
  Sender: FDA-Public Use
  Company Number: KR-JNJFOC-20130509829

PATIENT
  Age: 51 Year
  Sex: Male

DRUGS (2)
  1. DUROGESIC D-TRANS [Suspect]
     Indication: PAIN
     Dosage: 12.5 - 25 UG/HR
     Route: 062
     Dates: start: 201207, end: 201304
  2. DUROGESIC D-TRANS [Suspect]
     Indication: PAIN
     Route: 062

REACTIONS (7)
  - Drug dependence [Not Recovered/Not Resolved]
  - Insomnia [Not Recovered/Not Resolved]
  - Pain [Not Recovered/Not Resolved]
  - Decreased appetite [Not Recovered/Not Resolved]
  - Chills [Not Recovered/Not Resolved]
  - Inappropriate schedule of drug administration [Unknown]
  - Flatulence [Not Recovered/Not Resolved]
